FAERS Safety Report 19990863 (Version 1)
Quarter: 2021Q4

REPORT INFORMATION
  Report Type: Spontaneous
  Country: FR (occurrence: FR)
  Receive Date: 20211025
  Receipt Date: 20211025
  Transmission Date: 20220303
  Serious: Yes (Death, Hospitalization, Other)
  Sender: FDA-Public Use
  Company Number: FR-BAYER-2021A232185

PATIENT
  Age: 57 Year
  Sex: Female

DRUGS (1)
  1. GADOBUTROL [Suspect]
     Active Substance: GADOBUTROL
     Indication: Magnetic resonance imaging head
     Dosage: UNK, ONCE

REACTIONS (15)
  - Brain injury [Fatal]
  - Anaphylactic reaction [Fatal]
  - Cardio-respiratory arrest [None]
  - Dyspnoea [None]
  - Abdominal pain [None]
  - Vomiting [None]
  - Hypothermia [None]
  - Tachypnoea [None]
  - Hypoxia [None]
  - Respiratory distress [None]
  - Cardiac arrest [None]
  - Neurological decompensation [None]
  - Brain stem syndrome [None]
  - Brain oedema [None]
  - Brain herniation [None]
